FAERS Safety Report 12804497 (Version 1)
Quarter: 2016Q4

REPORT INFORMATION
  Report Type: Spontaneous
  Country: US (occurrence: US)
  Receive Date: 20161003
  Receipt Date: 20161003
  Transmission Date: 20170207
  Serious: Yes (Other)
  Sender: FDA-Public Use
  Company Number: US-BAYER-2016-126076

PATIENT
  Age: 72 Year
  Sex: Male
  Weight: 117.91 kg

DRUGS (3)
  1. AFRIN NO DRIP EXTRA MOISTURIZING [Suspect]
     Active Substance: OXYMETAZOLINE HYDROCHLORIDE
     Indication: HYPERSENSITIVITY
     Dosage: 1 SPRAY PER NOSITRIL
     Route: 055
     Dates: start: 201607, end: 20160928
  2. AFRIN SEVERE CONGESTION [Suspect]
     Active Substance: OXYMETAZOLINE HYDROCHLORIDE
     Dosage: 1 DF, PRN
     Route: 045
     Dates: start: 201605, end: 201605
  3. AFRIN NO DRIP EXTRA MOISTURIZING [Suspect]
     Active Substance: OXYMETAZOLINE HYDROCHLORIDE
     Indication: NASOPHARYNGITIS

REACTIONS (5)
  - Drug dependence [None]
  - Nasal discomfort [Recovered/Resolved]
  - Circumstance or information capable of leading to medication error [None]
  - Rhinorrhoea [None]
  - Product use issue [None]

NARRATIVE: CASE EVENT DATE: 201605
